FAERS Safety Report 18335932 (Version 1)
Quarter: 2020Q4

REPORT INFORMATION
  Report Type: Spontaneous
  Country: FR (occurrence: FR)
  Receive Date: 20201001
  Receipt Date: 20201001
  Transmission Date: 20210113
  Serious: Yes (Life-Threatening, Hospitalization, Other)
  Sender: FDA-Public Use
  Company Number: FR-SA-2020SA269310

PATIENT

DRUGS (8)
  1. KARDEGIC [Interacting]
     Active Substance: ASPIRIN DL-LYSINE
     Indication: MYOCARDIAL INFARCTION
     Dosage: 75 MG, QD
     Route: 048
     Dates: start: 2014
  2. RIVAROXABAN [Interacting]
     Active Substance: RIVAROXABAN
     Indication: MYOCARDIAL INFARCTION
     Dosage: 20 MG, QD
     Route: 048
     Dates: start: 201906, end: 20200728
  3. HELICIDINE [Concomitant]
     Active Substance: ESCARGOT
  4. ALFUZOSINE HYDROCHLORIDE [Concomitant]
     Active Substance: ALFUZOSIN HYDROCHLORIDE
  5. SIMVASTATINE [Concomitant]
     Active Substance: SIMVASTATIN
  6. THIOVALONE [CHLORHEXIDINE DIACETATE;TIXOCORTOL PIVALATE] [Concomitant]
  7. BISOPROLOL FUMARATE. [Concomitant]
     Active Substance: BISOPROLOL FUMARATE
  8. IRBESARTAN. [Suspect]
     Active Substance: IRBESARTAN
     Indication: HYPERTENSION
     Dosage: 150 MG, QD
     Route: 048
     Dates: end: 20200805

REACTIONS (2)
  - Pericardial effusion [Recovered/Resolved]
  - Drug interaction [Unknown]

NARRATIVE: CASE EVENT DATE: 20200728
